FAERS Safety Report 21763447 (Version 2)
Quarter: 2023Q1

REPORT INFORMATION
  Report Type: Report from Study
  Country: JP (occurrence: JP)
  Receive Date: 20221221
  Receipt Date: 20230202
  Transmission Date: 20230418
  Serious: Yes (Hospitalization, Other)
  Sender: FDA-Public Use
  Company Number: JP-002147023-NVSJ2022JP276603

PATIENT
  Age: 58 Year
  Sex: Female
  Weight: 51.4 kg

DRUGS (9)
  1. TABRECTA [Suspect]
     Active Substance: CAPMATINIB
     Indication: Adenocarcinoma
     Dosage: 600 MG
     Route: 048
     Dates: start: 20220916, end: 20221211
  2. ATORVASTATIN [Concomitant]
     Active Substance: ATORVASTATIN
     Indication: Hyperlipidaemia
     Dosage: 5 MG, QD
     Route: 048
  3. LEMBOREXANT [Concomitant]
     Active Substance: LEMBOREXANT
     Indication: Insomnia
     Dosage: 5 MG, QD
     Route: 048
  4. LOXOPROFEN [Concomitant]
     Active Substance: LOXOPROFEN
     Indication: Cancer pain
     Dosage: 60 MG, PRN
     Route: 048
  5. ETIZOLAM [Concomitant]
     Active Substance: ETIZOLAM
     Indication: Insomnia
     Dosage: 0.5 MG, PRN
     Route: 048
  6. NALDEMEDINE TOSYLATE [Concomitant]
     Active Substance: NALDEMEDINE TOSYLATE
     Indication: Constipation
     Dosage: 0.2 MG, QD
     Route: 048
  7. URAPIDIL [Concomitant]
     Active Substance: URAPIDIL
     Indication: Neurogenic bladder
     Dosage: 15 MG, QD
     Route: 048
  8. FENTANYL [Concomitant]
     Active Substance: FENTANYL
     Indication: Cancer pain
     Dosage: 1.5 MG, QD
     Route: 062
  9. OXINORM [Concomitant]
     Indication: Cancer pain
     Dosage: 2.5 MG, PRN
     Route: 048

REACTIONS (4)
  - Adenocarcinoma [Unknown]
  - Malignant pleural effusion [Unknown]
  - Ascites [Unknown]
  - Respiratory distress [Not Recovered/Not Resolved]

NARRATIVE: CASE EVENT DATE: 20221209
